FAERS Safety Report 15427970 (Version 14)
Quarter: 2021Q1

REPORT INFORMATION
  Report Type: Report from Study
  Country: SG (occurrence: SG)
  Receive Date: 20180926
  Receipt Date: 20210122
  Transmission Date: 20210419
  Serious: Yes (Hospitalization)
  Sender: FDA-Public Use
  Company Number: SG-ROCHE-2174911

PATIENT
  Age: 64 Year
  Sex: Male
  Weight: 61.4 kg

DRUGS (179)
  1. PARACETAMOL [Concomitant]
     Active Substance: ACETAMINOPHEN
     Indication: CHILLS
     Dates: start: 20180806, end: 20180806
  2. PARACETAMOL [Concomitant]
     Active Substance: ACETAMINOPHEN
     Dates: start: 20190318, end: 20190318
  3. RANITIDINE. [Concomitant]
     Active Substance: RANITIDINE
     Dates: start: 20180917, end: 20180917
  4. RANITIDINE. [Concomitant]
     Active Substance: RANITIDINE
     Dates: start: 20190708, end: 20190708
  5. RANITIDINE. [Concomitant]
     Active Substance: RANITIDINE
     Dates: start: 20191125, end: 20191125
  6. DIPHENHYDRAMINE HCL [Concomitant]
     Active Substance: DIPHENHYDRAMINE HYDROCHLORIDE
     Dates: start: 20190429, end: 20190429
  7. DIPHENHYDRAMINE HCL [Concomitant]
     Active Substance: DIPHENHYDRAMINE HYDROCHLORIDE
     Dates: start: 20190930, end: 20190930
  8. DIPHENHYDRAMINE HCL [Concomitant]
     Active Substance: DIPHENHYDRAMINE HYDROCHLORIDE
     Dates: start: 20180806, end: 20180806
  9. SODIUM CHLORIDE. [Concomitant]
     Active Substance: SODIUM CHLORIDE
     Dates: start: 20191209, end: 20191209
  10. SODIUM CHLORIDE. [Concomitant]
     Active Substance: SODIUM CHLORIDE
     Dates: start: 20191223, end: 20191223
  11. RO6874281 (FAP IL2V MAB) [Suspect]
     Active Substance: SIMLUKAFUSP ALFA
     Indication: NON-SMALL CELL LUNG CANCER
     Dosage: DATE OF MOST RECENT DOSE OF RO6874281 PRIOR TO ADVERSE EVENT AND SERIOUS ADVERSE EVENT (6:29 PM TO 8
     Route: 042
     Dates: start: 20180121
  12. PARACETAMOL [Concomitant]
     Active Substance: ACETAMINOPHEN
     Indication: PYREXIA
     Dates: start: 20180808, end: 20180915
  13. PARACETAMOL [Concomitant]
     Active Substance: ACETAMINOPHEN
     Dates: start: 20181015, end: 20181015
  14. PARACETAMOL [Concomitant]
     Active Substance: ACETAMINOPHEN
     Dates: start: 20190107, end: 20190107
  15. PARACETAMOL [Concomitant]
     Active Substance: ACETAMINOPHEN
     Dates: start: 20190527, end: 20190527
  16. PARACETAMOL [Concomitant]
     Active Substance: ACETAMINOPHEN
     Dates: start: 20190429, end: 20190429
  17. PARACETAMOL [Concomitant]
     Active Substance: ACETAMINOPHEN
     Dates: start: 20191209, end: 20191209
  18. PARACETAMOL [Concomitant]
     Active Substance: ACETAMINOPHEN
     Dates: start: 20180813, end: 20180815
  19. PARACETAMOL [Concomitant]
     Active Substance: ACETAMINOPHEN
     Dates: start: 20180820, end: 20180902
  20. RANITIDINE. [Concomitant]
     Active Substance: RANITIDINE
     Dates: start: 20181001, end: 20181001
  21. RANITIDINE. [Concomitant]
     Active Substance: RANITIDINE
     Dates: start: 20181224, end: 20181224
  22. RANITIDINE. [Concomitant]
     Active Substance: RANITIDINE
     Dates: start: 20190107, end: 20190107
  23. RANITIDINE. [Concomitant]
     Active Substance: RANITIDINE
     Dates: start: 20190513, end: 20190513
  24. RANITIDINE. [Concomitant]
     Active Substance: RANITIDINE
     Dates: start: 20190527, end: 20190527
  25. RANITIDINE. [Concomitant]
     Active Substance: RANITIDINE
     Dates: start: 20190624, end: 20190624
  26. RANITIDINE. [Concomitant]
     Active Substance: RANITIDINE
     Dates: start: 20190930, end: 20190930
  27. RANITIDINE. [Concomitant]
     Active Substance: RANITIDINE
     Dates: start: 20191014, end: 20191014
  28. RANITIDINE. [Concomitant]
     Active Substance: RANITIDINE
     Dates: start: 20191111, end: 20191111
  29. RANITIDINE. [Concomitant]
     Active Substance: RANITIDINE
     Dates: start: 20191209, end: 20191209
  30. DIPHENHYDRAMINE HCL [Concomitant]
     Active Substance: DIPHENHYDRAMINE HYDROCHLORIDE
     Dates: start: 20180813, end: 20180813
  31. DIPHENHYDRAMINE HCL [Concomitant]
     Active Substance: DIPHENHYDRAMINE HYDROCHLORIDE
     Dates: start: 20181126, end: 20181126
  32. DIPHENHYDRAMINE HCL [Concomitant]
     Active Substance: DIPHENHYDRAMINE HYDROCHLORIDE
     Dates: start: 20181224, end: 20181224
  33. DIPHENHYDRAMINE HCL [Concomitant]
     Active Substance: DIPHENHYDRAMINE HYDROCHLORIDE
     Dates: start: 20190401, end: 20190401
  34. DIPHENHYDRAMINE HCL [Concomitant]
     Active Substance: DIPHENHYDRAMINE HYDROCHLORIDE
     Dates: start: 20190610, end: 20190610
  35. DIPHENHYDRAMINE HCL [Concomitant]
     Active Substance: DIPHENHYDRAMINE HYDROCHLORIDE
     Dates: start: 20190722, end: 20190722
  36. SODIUM CHLORIDE. [Concomitant]
     Active Substance: SODIUM CHLORIDE
     Dates: start: 20190218, end: 20190218
  37. SODIUM CHLORIDE. [Concomitant]
     Active Substance: SODIUM CHLORIDE
     Dates: start: 20190624, end: 20190624
  38. SODIUM CHLORIDE. [Concomitant]
     Active Substance: SODIUM CHLORIDE
     Dates: start: 20190805, end: 20190805
  39. SODIUM CHLORIDE. [Concomitant]
     Active Substance: SODIUM CHLORIDE
     Dates: start: 20191025, end: 20191025
  40. GNC MAGNESIUM [Concomitant]
     Dates: start: 20180812, end: 20180814
  41. ORACARE [CHLORINE DIOXIDE] [Concomitant]
     Indication: LARYNGEAL ULCERATION
     Dates: start: 20180109
  42. PARACETAMOL [Concomitant]
     Active Substance: ACETAMINOPHEN
     Dates: start: 20181029, end: 20181029
  43. PARACETAMOL [Concomitant]
     Active Substance: ACETAMINOPHEN
     Dates: start: 20181112, end: 20181112
  44. PARACETAMOL [Concomitant]
     Active Substance: ACETAMINOPHEN
     Dates: start: 20181126, end: 20181126
  45. PARACETAMOL [Concomitant]
     Active Substance: ACETAMINOPHEN
     Dates: start: 20190201, end: 20190201
  46. PARACETAMOL [Concomitant]
     Active Substance: ACETAMINOPHEN
     Dates: start: 20190415, end: 20190415
  47. PARACETAMOL [Concomitant]
     Active Substance: ACETAMINOPHEN
     Dates: start: 20190805, end: 20190805
  48. PARACETAMOL [Concomitant]
     Active Substance: ACETAMINOPHEN
     Dates: start: 20190819, end: 20190819
  49. PARACETAMOL [Concomitant]
     Active Substance: ACETAMINOPHEN
     Dates: start: 20190902, end: 20190902
  50. PARACETAMOL [Concomitant]
     Active Substance: ACETAMINOPHEN
     Dates: start: 20191025, end: 20191025
  51. PARACETAMOL [Concomitant]
     Active Substance: ACETAMINOPHEN
     Dates: start: 20200106, end: 20200106
  52. PARACETAMOL [Concomitant]
     Active Substance: ACETAMINOPHEN
     Dates: start: 20200120, end: 20200120
  53. PARACETAMOL [Concomitant]
     Active Substance: ACETAMINOPHEN
     Dates: start: 20180820, end: 20180821
  54. PARACETAMOL [Concomitant]
     Active Substance: ACETAMINOPHEN
     Dates: start: 20180822, end: 20180825
  55. RANITIDINE. [Concomitant]
     Active Substance: RANITIDINE
     Dates: start: 20181112, end: 20181112
  56. RANITIDINE. [Concomitant]
     Active Substance: RANITIDINE
     Dates: start: 20190415, end: 20190415
  57. DIPHENHYDRAMINE HCL [Concomitant]
     Active Substance: DIPHENHYDRAMINE HYDROCHLORIDE
     Dates: start: 20181015, end: 20181015
  58. DIPHENHYDRAMINE HCL [Concomitant]
     Active Substance: DIPHENHYDRAMINE HYDROCHLORIDE
     Dates: start: 20190201, end: 20190201
  59. DIPHENHYDRAMINE HCL [Concomitant]
     Active Substance: DIPHENHYDRAMINE HYDROCHLORIDE
     Dates: start: 20190415, end: 20190415
  60. DIPHENHYDRAMINE HCL [Concomitant]
     Active Substance: DIPHENHYDRAMINE HYDROCHLORIDE
     Dates: start: 20190527, end: 20190527
  61. SODIUM CHLORIDE. [Concomitant]
     Active Substance: SODIUM CHLORIDE
     Dates: start: 20181224, end: 20181224
  62. SODIUM CHLORIDE. [Concomitant]
     Active Substance: SODIUM CHLORIDE
     Dates: start: 20190107, end: 20190107
  63. SODIUM CHLORIDE. [Concomitant]
     Active Substance: SODIUM CHLORIDE
     Dates: start: 20190304, end: 20190304
  64. SODIUM CHLORIDE. [Concomitant]
     Active Substance: SODIUM CHLORIDE
     Dates: start: 20190708, end: 20190708
  65. SODIUM CHLORIDE. [Concomitant]
     Active Substance: SODIUM CHLORIDE
     Dates: start: 20191014, end: 20191014
  66. GNC MAGNESIUM [Concomitant]
     Indication: HYPOMAGNESAEMIA
     Dates: start: 20180806, end: 20180810
  67. LISINOPRIL. [Concomitant]
     Active Substance: LISINOPRIL
     Indication: HYPERTENSION
     Dates: start: 20180805, end: 20180908
  68. PARACETAMOL [Concomitant]
     Active Substance: ACETAMINOPHEN
     Indication: PAIN
     Dates: start: 20181001, end: 20181125
  69. PARACETAMOL [Concomitant]
     Active Substance: ACETAMINOPHEN
     Dates: start: 20190722, end: 20190722
  70. PARACETAMOL [Concomitant]
     Active Substance: ACETAMINOPHEN
     Dates: start: 20190916, end: 20190916
  71. PARACETAMOL [Concomitant]
     Active Substance: ACETAMINOPHEN
     Dates: start: 20191111, end: 20191111
  72. SODIUM GLYCEROPHOSPHATE [Concomitant]
     Active Substance: SODIUM GLYCEROPHOSPHATE
     Indication: HYPONATRAEMIA
     Dates: start: 20180821, end: 20180824
  73. LIGNOCAINE HCL [Concomitant]
     Active Substance: LIDOCAINE HYDROCHLORIDE
     Indication: ANAESTHESIA
     Dates: start: 20180823, end: 20180823
  74. TRAMADOL HCL [Concomitant]
     Active Substance: TRAMADOL HYDROCHLORIDE
     Indication: PAIN
     Dates: start: 20180823, end: 20180823
  75. RANITIDINE. [Concomitant]
     Active Substance: RANITIDINE
     Dates: start: 20191223, end: 20191223
  76. DIPHENHYDRAMINE HCL [Concomitant]
     Active Substance: DIPHENHYDRAMINE HYDROCHLORIDE
     Indication: PREMEDICATION
     Dates: start: 20190708, end: 20190708
  77. DIPHENHYDRAMINE HCL [Concomitant]
     Active Substance: DIPHENHYDRAMINE HYDROCHLORIDE
     Dates: start: 20190121, end: 20190121
  78. DIPHENHYDRAMINE HCL [Concomitant]
     Active Substance: DIPHENHYDRAMINE HYDROCHLORIDE
     Dates: start: 20190318, end: 20190318
  79. DIPHENHYDRAMINE HCL [Concomitant]
     Active Substance: DIPHENHYDRAMINE HYDROCHLORIDE
     Dates: start: 20191125, end: 20191125
  80. SODIUM CHLORIDE. [Concomitant]
     Active Substance: SODIUM CHLORIDE
     Dates: start: 20181029, end: 20181029
  81. SODIUM CHLORIDE. [Concomitant]
     Active Substance: SODIUM CHLORIDE
     Dates: start: 20191111, end: 20191111
  82. MAGNESIUM SULPHATE [Concomitant]
     Active Substance: MAGNESIUM SULFATE
     Indication: HYPOMAGNESAEMIA
     Dates: start: 20180814, end: 20180814
  83. HIRUDOID [Concomitant]
     Active Substance: GLYCOSAMINOGLYCANS
     Indication: ERYTHEMA
     Dates: start: 20180824, end: 20180924
  84. OMEPRAZOLE. [Concomitant]
     Active Substance: OMEPRAZOLE
     Dates: start: 20171219
  85. FENOFIBRATE. [Concomitant]
     Active Substance: FENOFIBRATE
     Indication: HYPERLIPIDAEMIA
     Dates: start: 20180805, end: 20181021
  86. PHOSPHATE SANDOZ [Concomitant]
     Active Substance: SODIUM PHOSPHATE, MONOBASIC, ANHYDROUS
     Indication: HYPOPHOSPHATAEMIA
     Dates: start: 20180814, end: 20180816
  87. PARACETAMOL [Concomitant]
     Active Substance: ACETAMINOPHEN
     Indication: PREMEDICATION
     Dates: start: 20180813, end: 20180813
  88. PARACETAMOL [Concomitant]
     Active Substance: ACETAMINOPHEN
     Dates: start: 20190624, end: 20190624
  89. PARACETAMOL [Concomitant]
     Active Substance: ACETAMINOPHEN
     Dates: start: 20180807, end: 20180807
  90. PROCODIN [Concomitant]
     Active Substance: CODEINE PHOSPHATE\PROMETHAZINE HYDROCHLORIDE
     Indication: COUGH
     Dates: start: 20181112
  91. RANITIDINE. [Concomitant]
     Active Substance: RANITIDINE
     Indication: PREMEDICATION
     Dates: start: 20180806, end: 20180806
  92. RANITIDINE. [Concomitant]
     Active Substance: RANITIDINE
     Dates: start: 20181126, end: 20181126
  93. RANITIDINE. [Concomitant]
     Active Substance: RANITIDINE
     Dates: start: 20190218, end: 20190218
  94. RANITIDINE. [Concomitant]
     Active Substance: RANITIDINE
     Dates: start: 20200106, end: 20200106
  95. DIPHENHYDRAMINE HCL [Concomitant]
     Active Substance: DIPHENHYDRAMINE HYDROCHLORIDE
     Dates: start: 20190624, end: 20190624
  96. DIPHENHYDRAMINE HCL [Concomitant]
     Active Substance: DIPHENHYDRAMINE HYDROCHLORIDE
     Dates: start: 20190902, end: 20190902
  97. SODIUM CHLORIDE. [Concomitant]
     Active Substance: SODIUM CHLORIDE
     Dates: start: 20180917, end: 20181015
  98. SODIUM CHLORIDE. [Concomitant]
     Active Substance: SODIUM CHLORIDE
     Dates: start: 20181001, end: 20181001
  99. SODIUM CHLORIDE. [Concomitant]
     Active Substance: SODIUM CHLORIDE
     Dates: start: 20181015, end: 20181015
  100. SODIUM CHLORIDE. [Concomitant]
     Active Substance: SODIUM CHLORIDE
     Dates: start: 20190121, end: 20190121
  101. SODIUM CHLORIDE. [Concomitant]
     Active Substance: SODIUM CHLORIDE
     Dates: start: 20190527, end: 20190527
  102. SODIUM CHLORIDE. [Concomitant]
     Active Substance: SODIUM CHLORIDE
     Dates: start: 20190819, end: 20190819
  103. MAGNESIUM SULPHATE [Concomitant]
     Active Substance: MAGNESIUM SULFATE
     Dates: start: 20180823, end: 20180823
  104. ATORVASTATIN [Concomitant]
     Active Substance: ATORVASTATIN
     Indication: HYPERLIPIDAEMIA
     Dates: start: 20180805, end: 20180924
  105. PARACETAMOL [Concomitant]
     Active Substance: ACETAMINOPHEN
     Dates: start: 20181001, end: 20181001
  106. PARACETAMOL [Concomitant]
     Active Substance: ACETAMINOPHEN
     Dates: start: 20181224, end: 20181224
  107. PARACETAMOL [Concomitant]
     Active Substance: ACETAMINOPHEN
     Dates: start: 20190121, end: 20190121
  108. PARACETAMOL [Concomitant]
     Active Substance: ACETAMINOPHEN
     Dates: start: 20190513, end: 20190513
  109. RANITIDINE. [Concomitant]
     Active Substance: RANITIDINE
     Dates: start: 20180820, end: 20180820
  110. RANITIDINE. [Concomitant]
     Active Substance: RANITIDINE
     Dates: start: 20181029, end: 20181029
  111. RANITIDINE. [Concomitant]
     Active Substance: RANITIDINE
     Dates: start: 20190121, end: 20190121
  112. RANITIDINE. [Concomitant]
     Active Substance: RANITIDINE
     Dates: start: 20190722, end: 20190722
  113. RANITIDINE. [Concomitant]
     Active Substance: RANITIDINE
     Dates: start: 20190916, end: 20190916
  114. DIPHENHYDRAMINE HCL [Concomitant]
     Active Substance: DIPHENHYDRAMINE HYDROCHLORIDE
     Dates: start: 20181210, end: 20181210
  115. DIPHENHYDRAMINE HCL [Concomitant]
     Active Substance: DIPHENHYDRAMINE HYDROCHLORIDE
     Dates: start: 20190304, end: 20190304
  116. DIPHENHYDRAMINE HCL [Concomitant]
     Active Substance: DIPHENHYDRAMINE HYDROCHLORIDE
     Dates: start: 20191111, end: 20191111
  117. SODIUM CHLORIDE. [Concomitant]
     Active Substance: SODIUM CHLORIDE
     Dates: start: 20181210, end: 20181210
  118. SODIUM CHLORIDE. [Concomitant]
     Active Substance: SODIUM CHLORIDE
     Dates: start: 20190201, end: 20190201
  119. SODIUM CHLORIDE. [Concomitant]
     Active Substance: SODIUM CHLORIDE
     Dates: start: 20190318, end: 20190318
  120. SODIUM CHLORIDE. [Concomitant]
     Active Substance: SODIUM CHLORIDE
     Dates: start: 20190610, end: 20190610
  121. SODIUM CHLORIDE. [Concomitant]
     Active Substance: SODIUM CHLORIDE
     Dates: start: 20190916, end: 20190916
  122. SODIUM CHLORIDE. [Concomitant]
     Active Substance: SODIUM CHLORIDE
     Dates: start: 20190902, end: 20190902
  123. SODIUM CHLORIDE. [Concomitant]
     Active Substance: SODIUM CHLORIDE
     Dates: start: 20191125, end: 20191125
  124. SODIUM CHLORIDE. [Concomitant]
     Active Substance: SODIUM CHLORIDE
     Dates: start: 20200120, end: 20200120
  125. BETAMETHASONE VALERATE. [Concomitant]
     Active Substance: BETAMETHASONE VALERATE
     Indication: RASH
     Dates: start: 20181019, end: 20181025
  126. NICOTINELL [Concomitant]
     Active Substance: NICOTINE
     Dosage: 14 MG/24HOUR PATCH
     Dates: start: 20190513, end: 20190602
  127. ATEZOLIZUMAB. [Suspect]
     Active Substance: ATEZOLIZUMAB
     Indication: NON-SMALL CELL LUNG CANCER
     Dosage: DATE OF LAST DOSE OF ATEZOLIZUMAB PRIOR TO ADVERSE EVENT  AND SERIOUS ADVERSE EVENT (FROM 4:22 PM TO
     Route: 042
     Dates: start: 20180806
  128. GLYCERYL TRINITRATE [Concomitant]
     Active Substance: NITROGLYCERIN
     Indication: CHEST PAIN
     Route: 048
     Dates: start: 20180405, end: 20181024
  129. PHOSPHATE SANDOZ [Concomitant]
     Active Substance: SODIUM PHOSPHATE, MONOBASIC, ANHYDROUS
     Dates: start: 20180820, end: 20180824
  130. PARACETAMOL [Concomitant]
     Active Substance: ACETAMINOPHEN
     Dates: start: 20190218, end: 20190218
  131. PARACETAMOL [Concomitant]
     Active Substance: ACETAMINOPHEN
     Dates: start: 20190708, end: 20190708
  132. PARACETAMOL [Concomitant]
     Active Substance: ACETAMINOPHEN
     Dates: start: 20190930, end: 20190930
  133. PARACETAMOL [Concomitant]
     Active Substance: ACETAMINOPHEN
     Dates: start: 20191014, end: 20191014
  134. POTASSIUM CHLORIDE. [Concomitant]
     Active Substance: POTASSIUM CHLORIDE
     Indication: HYPOKALAEMIA
     Dates: start: 20180823, end: 20180824
  135. RANITIDINE. [Concomitant]
     Active Substance: RANITIDINE
     Dates: start: 20180813, end: 20180817
  136. RANITIDINE. [Concomitant]
     Active Substance: RANITIDINE
     Dates: start: 20181015, end: 20181015
  137. RANITIDINE. [Concomitant]
     Active Substance: RANITIDINE
     Dates: start: 20181210, end: 20181210
  138. RANITIDINE. [Concomitant]
     Active Substance: RANITIDINE
     Dates: start: 20190401, end: 20190401
  139. RANITIDINE. [Concomitant]
     Active Substance: RANITIDINE
     Dates: start: 20190902, end: 20190902
  140. RANITIDINE. [Concomitant]
     Active Substance: RANITIDINE
     Dates: start: 20191025, end: 20191025
  141. RANITIDINE. [Concomitant]
     Active Substance: RANITIDINE
     Dates: start: 20200120, end: 20200120
  142. DIPHENHYDRAMINE HCL [Concomitant]
     Active Substance: DIPHENHYDRAMINE HYDROCHLORIDE
     Dates: start: 20181029, end: 20181029
  143. DIPHENHYDRAMINE HCL [Concomitant]
     Active Substance: DIPHENHYDRAMINE HYDROCHLORIDE
     Dates: start: 20190513, end: 20190513
  144. DIPHENHYDRAMINE HCL [Concomitant]
     Active Substance: DIPHENHYDRAMINE HYDROCHLORIDE
     Dates: start: 20190805, end: 20190805
  145. DIPHENHYDRAMINE HCL [Concomitant]
     Active Substance: DIPHENHYDRAMINE HYDROCHLORIDE
     Dates: start: 20190916, end: 20190916
  146. DIPHENHYDRAMINE HCL [Concomitant]
     Active Substance: DIPHENHYDRAMINE HYDROCHLORIDE
     Dates: start: 20191014, end: 20191014
  147. DIPHENHYDRAMINE HCL [Concomitant]
     Active Substance: DIPHENHYDRAMINE HYDROCHLORIDE
     Dates: start: 20191223, end: 20191223
  148. DIPHENHYDRAMINE HCL [Concomitant]
     Active Substance: DIPHENHYDRAMINE HYDROCHLORIDE
     Dates: start: 20200106, end: 20200106
  149. SODIUM CHLORIDE. [Concomitant]
     Active Substance: SODIUM CHLORIDE
     Dates: start: 20190415, end: 20190415
  150. SODIUM CHLORIDE. [Concomitant]
     Active Substance: SODIUM CHLORIDE
     Dates: start: 20190429, end: 20190429
  151. SODIUM CHLORIDE. [Concomitant]
     Active Substance: SODIUM CHLORIDE
     Dates: start: 20190930, end: 20190930
  152. SODIUM CHLORIDE. [Concomitant]
     Active Substance: SODIUM CHLORIDE
     Dates: start: 20200106, end: 20200106
  153. NICOTINELL [Concomitant]
     Active Substance: NICOTINE
     Dosage: 7 MG/24HOUR PATCH
     Dates: start: 20190603
  154. PARACETAMOL [Concomitant]
     Active Substance: ACETAMINOPHEN
     Dates: start: 20181210, end: 20181210
  155. PARACETAMOL [Concomitant]
     Active Substance: ACETAMINOPHEN
     Dates: start: 20190304, end: 20190304
  156. PARACETAMOL [Concomitant]
     Active Substance: ACETAMINOPHEN
     Dates: start: 20190401, end: 20190401
  157. PARACETAMOL [Concomitant]
     Active Substance: ACETAMINOPHEN
     Dates: start: 20190610, end: 20190610
  158. PARACETAMOL [Concomitant]
     Active Substance: ACETAMINOPHEN
     Dates: start: 20191125, end: 20191125
  159. PARACETAMOL [Concomitant]
     Active Substance: ACETAMINOPHEN
     Dates: start: 20191223, end: 20191223
  160. RANITIDINE. [Concomitant]
     Active Substance: RANITIDINE
     Dates: start: 20180820, end: 20180820
  161. RANITIDINE. [Concomitant]
     Active Substance: RANITIDINE
     Dates: start: 20190201, end: 20190201
  162. RANITIDINE. [Concomitant]
     Active Substance: RANITIDINE
     Dates: start: 20190304, end: 20190304
  163. RANITIDINE. [Concomitant]
     Active Substance: RANITIDINE
     Dates: start: 20190318, end: 20190318
  164. RANITIDINE. [Concomitant]
     Active Substance: RANITIDINE
     Dates: start: 20190610, end: 20190610
  165. RANITIDINE. [Concomitant]
     Active Substance: RANITIDINE
     Dates: start: 20190429, end: 20190429
  166. RANITIDINE. [Concomitant]
     Active Substance: RANITIDINE
     Dates: start: 20190805, end: 20190805
  167. RANITIDINE. [Concomitant]
     Active Substance: RANITIDINE
     Dates: start: 20190819, end: 20190819
  168. DIPHENHYDRAMINE HCL [Concomitant]
     Active Substance: DIPHENHYDRAMINE HYDROCHLORIDE
     Dates: start: 20180820, end: 20180820
  169. DIPHENHYDRAMINE HCL [Concomitant]
     Active Substance: DIPHENHYDRAMINE HYDROCHLORIDE
     Dates: start: 20180917, end: 20180917
  170. DIPHENHYDRAMINE HCL [Concomitant]
     Active Substance: DIPHENHYDRAMINE HYDROCHLORIDE
     Dates: start: 20181001, end: 20181001
  171. DIPHENHYDRAMINE HCL [Concomitant]
     Active Substance: DIPHENHYDRAMINE HYDROCHLORIDE
     Dates: start: 20190107, end: 20190107
  172. DIPHENHYDRAMINE HCL [Concomitant]
     Active Substance: DIPHENHYDRAMINE HYDROCHLORIDE
     Dates: start: 20190218, end: 20190218
  173. DIPHENHYDRAMINE HCL [Concomitant]
     Active Substance: DIPHENHYDRAMINE HYDROCHLORIDE
     Dates: start: 20190819, end: 20190819
  174. DIPHENHYDRAMINE HCL [Concomitant]
     Active Substance: DIPHENHYDRAMINE HYDROCHLORIDE
     Dates: start: 20191025, end: 20191025
  175. DIPHENHYDRAMINE HCL [Concomitant]
     Active Substance: DIPHENHYDRAMINE HYDROCHLORIDE
     Dates: start: 20191209, end: 20191209
  176. DIPHENHYDRAMINE HCL [Concomitant]
     Active Substance: DIPHENHYDRAMINE HYDROCHLORIDE
     Dates: start: 20200120, end: 20200120
  177. SODIUM CHLORIDE. [Concomitant]
     Active Substance: SODIUM CHLORIDE
     Dates: start: 20181126, end: 20181126
  178. SODIUM CHLORIDE. [Concomitant]
     Active Substance: SODIUM CHLORIDE
     Dates: start: 20190513, end: 20190513
  179. MAGNESIUM SULPHATE [Concomitant]
     Active Substance: MAGNESIUM SULFATE
     Dates: start: 20180821, end: 20180821

REACTIONS (1)
  - Systemic immune activation [Recovered/Resolved]

NARRATIVE: CASE EVENT DATE: 20180821
